FAERS Safety Report 25667722 (Version 1)
Quarter: 2025Q3

REPORT INFORMATION
  Report Type: Report from Study
  Country: CN (occurrence: CN)
  Receive Date: 20250811
  Receipt Date: 20250811
  Transmission Date: 20251021
  Serious: Yes (Hospitalization)
  Sender: ABBVIE
  Company Number: CN-ABBVIE-6406155

PATIENT
  Age: 33 Year
  Sex: Female
  Weight: 65 kg

DRUGS (7)
  1. RINVOQ [Suspect]
     Active Substance: UPADACITINIB
     Indication: Dermatitis atopic
     Dosage: FORM STRENGTH: 15 MILLIGRAM
     Route: 048
     Dates: start: 20250424
  2. DOXYCYCLINE HYCLATE [Concomitant]
     Active Substance: DOXYCYCLINE HYCLATE
     Indication: Dermatitis atopic
     Dosage: ENTERIC COATED CAPSULES
     Route: 048
     Dates: start: 20250424, end: 20250430
  3. Pentavitamin,Licorice and Chlorphenamine Maleate [Concomitant]
     Indication: Dermatitis atopic
     Route: 048
     Dates: start: 20250424, end: 20250515
  4. Pentavitamin,Licorice and Chlorphenamine Maleate [Concomitant]
     Indication: Dermatitis atopic
     Route: 048
     Dates: start: 20250806
  5. Pentavitamin,Licorice and Chlorphenamine Maleate [Concomitant]
     Indication: Dermatitis atopic
     Route: 048
     Dates: start: 20250517, end: 20250614
  6. GENTAMICIN SULFATE [Concomitant]
     Active Substance: GENTAMICIN SULFATE
     Indication: Dermatitis atopic
     Route: 061
     Dates: start: 20250424, end: 20250430
  7. BETAMETHASONE DIPROPIONATE [Concomitant]
     Active Substance: BETAMETHASONE DIPROPIONATE
     Indication: Dermatitis atopic
     Route: 061
     Dates: start: 20250424, end: 20250430

REACTIONS (1)
  - Breast mass [Recovering/Resolving]

NARRATIVE: CASE EVENT DATE: 20250424
